FAERS Safety Report 16675105 (Version 1)
Quarter: 2019Q3

REPORT INFORMATION
  Report Type: Report from Study
  Country: DE (occurrence: DE)
  Receive Date: 20190806
  Receipt Date: 20190806
  Transmission Date: 20191004
  Serious: Yes (Other)
  Sender: FDA-Public Use
  Company Number: DE-JNJFOC-20190742283

PATIENT

DRUGS (3)
  1. SALINE SOLUTION [Concomitant]
     Active Substance: SODIUM CHLORIDE
     Dosage: SODIUM CHLORIDE: 0.9%
     Route: 033
  2. DOXORUBICIN HYDROCHLORIDE. [Suspect]
     Active Substance: DOXORUBICIN HYDROCHLORIDE
     Indication: PLEURAL MESOTHELIOMA MALIGNANT
     Dosage: RECEIVED INTRAPERITONEAL CHEMOPERFUSION INCLUDING CISPLATIN AND DOXORUBICIN INTO THE 5,000ML OF 0...
     Route: 033
  3. CISPLATIN. [Suspect]
     Active Substance: CISPLATIN
     Indication: PLEURAL MESOTHELIOMA MALIGNANT
     Dosage: RECEIVED INTRAPERITONEAL CHEMOPERFUSION INCLUDING CISPLATIN AND DOXORUBICIN CISPLATIN INTO THE 5 000
     Route: 033

REACTIONS (3)
  - Renal failure [Recovered/Resolved]
  - Product use in unapproved indication [Unknown]
  - Off label use [Unknown]
